FAERS Safety Report 23044948 (Version 2)
Quarter: 2023Q4

REPORT INFORMATION
  Report Type: Spontaneous
  Country: BR (occurrence: BR)
  Receive Date: 20231009
  Receipt Date: 20231013
  Transmission Date: 20240110
  Serious: Yes (Other)
  Sender: FDA-Public Use
  Company Number: BR-MYLANLABS-2023M1105207

PATIENT
  Sex: Female

DRUGS (4)
  1. LATANOPROST\TIMOLOL MALEATE [Suspect]
     Active Substance: LATANOPROST\TIMOLOL MALEATE
     Indication: Intraocular pressure increased
     Dosage: 1 GTT DROPS, QID (TWICE IN THE MORNING AND TWICE AT NIGHT )
     Route: 047
  2. LATANOPROST\TIMOLOL MALEATE [Suspect]
     Active Substance: LATANOPROST\TIMOLOL MALEATE
     Dosage: 1 GTT DROPS, QD ( ONCE A DAY, AT NIGHT)
     Route: 047
  3. XALATAN [Suspect]
     Active Substance: LATANOPROST
     Indication: Intraocular pressure increased
     Dosage: 1 GTT DROPS, QID (TWICE IN THE MORNING AND TWICE AT NIGHT )
     Route: 047
  4. BRITENS [Concomitant]
     Indication: Intraocular pressure increased
     Dosage: UNK
     Route: 047

REACTIONS (6)
  - Corneal thickening [Unknown]
  - Corneal disorder [Unknown]
  - Corneal opacity [Unknown]
  - Drug ineffective [Unknown]
  - Intraocular pressure increased [Unknown]
  - Overdose [Unknown]
